FAERS Safety Report 9102622 (Version 2)
Quarter: 2013Q1

REPORT INFORMATION
  Report Type: Spontaneous
  Country: SE (occurrence: SE)
  Receive Date: 20130219
  Receipt Date: 20130301
  Transmission Date: 20140127
  Serious: Yes (Other)
  Sender: FDA-Public Use
  Company Number: SE-PFIZER INC-2013061136

PATIENT
  Sex: Female

DRUGS (2)
  1. TRIATEC [Suspect]
     Dosage: 5 MG, 2X/DAY
     Route: 048
     Dates: start: 2008
  2. PRADAXA [Concomitant]

REACTIONS (2)
  - Hypothyroidism [Unknown]
  - Blood glucose increased [Unknown]
